FAERS Safety Report 12254876 (Version 2)
Quarter: 2016Q2

REPORT INFORMATION
  Report Type: Report from Study
  Country: DE (occurrence: DE)
  Receive Date: 20160411
  Receipt Date: 20160506
  Transmission Date: 20160815
  Serious: Yes (Hospitalization)
  Sender: FDA-Public Use
  Company Number: DE-ABBVIE-16P-062-1599461-00

PATIENT
  Age: 52 Year
  Sex: Male

DRUGS (3)
  1. SAFINAMIDE [Concomitant]
     Active Substance: SAFINAMIDE
     Indication: PRODUCT USED FOR UNKNOWN INDICATION
     Route: 065
  2. DUODOPA [Suspect]
     Active Substance: CARBIDOPA\LEVODOPA
     Indication: PARKINSON^S DISEASE
     Dosage: MD: 4,0ML; CRD: 6,2ML/H; CRN: 2,8ML/H; ED: 0,0ML
     Route: 050
     Dates: start: 20140307
  3. LEPONEX [Concomitant]
     Active Substance: CLOZAPINE
     Indication: PRODUCT USED FOR UNKNOWN INDICATION
     Route: 065

REACTIONS (2)
  - Hyperkinesia [Unknown]
  - Deep brain stimulation [Not Recovered/Not Resolved]

NARRATIVE: CASE EVENT DATE: 2016
